FAERS Safety Report 17569080 (Version 2)
Quarter: 2020Q3

REPORT INFORMATION
  Report Type: Spontaneous
  Country: US (occurrence: US)
  Receive Date: 20200322
  Receipt Date: 20200805
  Transmission Date: 20201102
  Serious: No
  Sender: FDA-Public Use
  Company Number: US-TEVA-2020-US-1188373

PATIENT
  Age: 36 Year
  Sex: Female

DRUGS (8)
  1. TYLENOL 8HR [Concomitant]
     Active Substance: ACETAMINOPHEN
     Dosage: TYLENOL 8HR TAB 650MG
  2. VITAMIN D3 [Concomitant]
     Active Substance: CHOLECALCIFEROL
     Dosage: VITAMIN D3 DRO 400 UNIT
  3. ADVIL [Concomitant]
     Active Substance: IBUPROFEN
  4. PRENATAL 1 [Concomitant]
  5. FOLIC ACID. [Concomitant]
     Active Substance: FOLIC ACID
  6. VITAMIN B12 [Concomitant]
     Active Substance: CYANOCOBALAMIN
     Dosage: VITAMIN B12 TAB 1000 CR
  7. COPAXONE [Suspect]
     Active Substance: GLATIRAMER ACETATE
     Indication: MULTIPLE SCLEROSIS
     Dosage: COPAXONE 40MG/ML THRICE A WEEK
     Route: 058
     Dates: start: 20170210
  8. BENADRYL [Concomitant]
     Active Substance: DIPHENHYDRAMINE HYDROCHLORIDE

REACTIONS (5)
  - Fatigue [Not Recovered/Not Resolved]
  - Ingrowing nail [Not Recovered/Not Resolved]
  - Peripheral swelling [Not Recovered/Not Resolved]
  - Erythema [Not Recovered/Not Resolved]
  - Feeling hot [Not Recovered/Not Resolved]

NARRATIVE: CASE EVENT DATE: 20200115
